FAERS Safety Report 13743862 (Version 1)
Quarter: 2017Q3

REPORT INFORMATION
  Report Type: Spontaneous
  Country: US (occurrence: US)
  Receive Date: 20170712
  Receipt Date: 20170712
  Transmission Date: 20171127
  Serious: No
  Sender: FDA-Public Use
  Company Number: US-ELI_LILLY_AND_COMPANY-US201707001918

PATIENT
  Sex: Female

DRUGS (1)
  1. HUMALOG [Suspect]
     Active Substance: INSULIN LISPRO
     Indication: TYPE 2 DIABETES MELLITUS
     Dosage: UNK, PRN
     Route: 058
     Dates: start: 20170605

REACTIONS (7)
  - Herpes zoster [Not Recovered/Not Resolved]
  - Malaise [Unknown]
  - Eye disorder [Not Recovered/Not Resolved]
  - Limb discomfort [Not Recovered/Not Resolved]
  - Incorrect dose administered [Unknown]
  - Carpal tunnel syndrome [Not Recovered/Not Resolved]
  - Blood glucose increased [Unknown]
